FAERS Safety Report 19760252 (Version 2)
Quarter: 2021Q3

REPORT INFORMATION
  Report Type: Report from Study
  Country: None (occurrence: CA)
  Receive Date: 20210830
  Receipt Date: 20210928
  Transmission Date: 20211014
  Serious: Yes (Hospitalization, Other)
  Sender: FDA-Public Use
  Company Number: CA-ABBVIE-21K-028-3935915-00

PATIENT
  Age: 79 Year
  Sex: Female

DRUGS (1)
  1. SKYRIZI [Suspect]
     Active Substance: RISANKIZUMAB-RZAA
     Indication: PSORIASIS
     Route: 058
     Dates: start: 20201118

REACTIONS (3)
  - Oophorectomy [Recovered/Resolved]
  - Ovarian cyst [Not Recovered/Not Resolved]
  - Adnexal torsion [Unknown]

NARRATIVE: CASE EVENT DATE: 202105
